FAERS Safety Report 4465227-1 (Version None)
Quarter: 2004Q4

REPORT INFORMATION
  Report Type: 
  Country: None (occurrence: None)
  Receive Date: 20041004
  Receipt Date: 20040809
  Transmission Date: 20050328
  Serious: Yes (Other)
  Sender: FDA-Public Use
  Company Number: DE-ABBOTT-04P-062-0269991-00

PATIENT
  Sex: Male

DRUGS (1)
  1. ERGENYL CHRONO TABLETS [Suspect]
     Indication: GRAND MAL CONVULSION
     Route: 048
     Dates: end: 20040728

REACTIONS (3)
  - COMPLETED SUICIDE [None]
  - EPIGASTRIC DISCOMFORT [None]
  - LIPASE INCREASED [None]
